FAERS Safety Report 14527709 (Version 2)
Quarter: 2018Q1

REPORT INFORMATION
  Report Type: Spontaneous
  Country: US (occurrence: US)
  Receive Date: 20180213
  Receipt Date: 20180220
  Transmission Date: 20180509
  Serious: Yes (Death)
  Sender: FDA-Public Use
  Company Number: US-MITSUBISHI TANABE PHARMA CORPORATION-MPE2018-0002330

PATIENT
  Sex: Male

DRUGS (6)
  1. RADICAVA [Suspect]
     Active Substance: EDARAVONE
     Indication: MONOPLEGIA
     Route: 042
  2. VITAMIN D [Concomitant]
     Active Substance: CHOLECALCIFEROL
     Route: 065
  3. BACLOFEN. [Concomitant]
     Active Substance: BACLOFEN
     Route: 065
  4. RILUZOLE. [Concomitant]
     Active Substance: RILUZOLE
     Route: 065
  5. TRAMADOL. [Concomitant]
     Active Substance: TRAMADOL
     Route: 065
  6. DULOXETINE. [Concomitant]
     Active Substance: DULOXETINE
     Route: 065

REACTIONS (1)
  - Death [Fatal]
